FAERS Safety Report 8748236 (Version 2)
Quarter: 2012Q4

REPORT INFORMATION
  Report Type: Report from Study
  Country: US (occurrence: US)
  Receive Date: 20120827
  Receipt Date: 20121130
  Transmission Date: 20130627
  Serious: Yes (Hospitalization)
  Sender: FDA-Public Use
  Company Number: US-ROCHE-1096642

PATIENT
  Age: 47 Year
  Sex: Female
  Weight: 84.9 kg

DRUGS (3)
  1. BEVACIZUMAB [Suspect]
     Indication: BREAST CANCER
     Dosage: last dose prior to event - 27/Jul/2012
     Route: 042
     Dates: start: 20120615
  2. CYCLOPHOSPHAMIDE [Suspect]
     Indication: BREAST CANCER
     Route: 048
     Dates: start: 20120615, end: 20120801
  3. METHOTREXATE [Suspect]
     Indication: BREAST CANCER
     Route: 048
     Dates: start: 20120615, end: 20120801

REACTIONS (1)
  - Breast infection [Recovered/Resolved]
